FAERS Safety Report 7367867-9 (Version None)
Quarter: 2011Q1

REPORT INFORMATION
  Report Type: 
  Country: None (occurrence: None)
  Receive Date: 20110322
  Receipt Date: 20110315
  Transmission Date: 20110831
  Serious: Yes (Other)
  Sender: FDA-Public Use
  Company Number: BR-ABBOTT-11P-020-0712162-00

PATIENT
  Sex: Female
  Weight: 74 kg

DRUGS (2)
  1. HUMIRA [Suspect]
     Indication: RHEUMATOID ARTHRITIS
     Route: 058
  2. UNKNOWN DRUG [Concomitant]
     Indication: RHEUMATOID ARTHRITIS

REACTIONS (13)
  - PYREXIA [None]
  - MOBILITY DECREASED [None]
  - NAUSEA [None]
  - IMMUNODEFICIENCY [None]
  - UNEVALUABLE EVENT [None]
  - PLATELET DISORDER [None]
  - WHITE BLOOD CELL DISORDER [None]
  - HAEMATOCRIT ABNORMAL [None]
  - PNEUMONIA [None]
  - HAEMOGLOBIN ABNORMAL [None]
  - SUBCUTANEOUS ABSCESS [None]
  - SUBCUTANEOUS HAEMATOMA [None]
  - IMPAIRED HEALING [None]
